FAERS Safety Report 11828056 (Version 1)
Quarter: 2015Q4

REPORT INFORMATION
  Report Type: Spontaneous
  Country: FR (occurrence: FR)
  Receive Date: 20151211
  Receipt Date: 20151211
  Transmission Date: 20160305
  Serious: Yes (Hospitalization)
  Sender: FDA-Public Use
  Company Number: FR-ELI_LILLY_AND_COMPANY-FR201512000946

PATIENT
  Age: 68 Year
  Sex: Male

DRUGS (2)
  1. GEMZAR [Suspect]
     Active Substance: GEMCITABINE HYDROCHLORIDE
     Indication: PENILE CANCER
     Dosage: UNK, UNKNOWN
     Route: 042
     Dates: start: 201404
  2. INNOHEP [Concomitant]
     Active Substance: TINZAPARIN SODIUM
     Route: 042

REACTIONS (5)
  - Off label use [Unknown]
  - Fungal infection [Unknown]
  - Pulmonary embolism [Unknown]
  - General physical health deterioration [Unknown]
  - Weight decreased [Unknown]

NARRATIVE: CASE EVENT DATE: 20150526
